FAERS Safety Report 7869697-8 (Version None)
Quarter: 2011Q4

REPORT INFORMATION
  Report Type: 
  Country: None (occurrence: None)
  Receive Date: 20111028
  Receipt Date: 20111028
  Transmission Date: 20120403
  Serious: No
  Sender: FDA-Public Use
  Company Number: None

PATIENT
  Sex: Male

DRUGS (1)
  1. ENBREL [Suspect]
     Dosage: 50MG SQ QWEEK
     Route: 058
     Dates: start: 20110903

REACTIONS (3)
  - RHEUMATOID ARTHRITIS [None]
  - DRUG INEFFECTIVE [None]
  - DIARRHOEA [None]
